FAERS Safety Report 8854234 (Version 2)
Quarter: 2012Q4

REPORT INFORMATION
  Report Type: 
  Country: IT (occurrence: IT)
  Receive Date: 20121022
  Receipt Date: 20121119
  Transmission Date: 20130627
  Serious: Yes (Hospitalization)
  Sender: FDA-Public Use
  Company Number: IT-SANOFI-AVENTIS-2012SA076199

PATIENT
  Age: 80 Year
  Sex: Male

DRUGS (8)
  1. RAMIPRIL [Suspect]
     Indication: HYPERTENSION ARTERIAL
     Route: 048
     Dates: start: 20120101
  2. BISOPROLOL HEMIFUMARATE [Suspect]
     Indication: HYPERTENSION ARTERIAL
     Route: 048
     Dates: start: 20120101, end: 20120930
  3. FUROSEMIDE [Suspect]
     Indication: HYPERTENSION ARTERIAL
     Route: 048
     Dates: start: 20120101
  4. ALDACTONE [Suspect]
     Indication: HYPERTENSION ARTERIAL
     Dosage: Dose-1 posological unit, Form-Hard Cap
     Route: 048
     Dates: start: 20120101
  5. AMLODIPINE BESILATE [Suspect]
     Indication: HYPERTENSION ARTERIAL
     Route: 048
     Dates: start: 20120101
  6. VENITRIN [Suspect]
     Indication: ISCHEMIC HEART DISEASE
     Route: 062
     Dates: start: 20120101, end: 20120930
  7. LANOXIN [Concomitant]
     Indication: PAROXYSMAL ATRIAL FIBRILLATION
     Dosage: ONE POSOLOGICAL UNIT
     Route: 048
  8. COUMADIN [Concomitant]
     Indication: PAROXYSMAL ATRIAL FIBRILLATION
     Dosage: ONE POSOLOGICAL UNIT
     Route: 048

REACTIONS (2)
  - Loss of consciousness [Recovered/Resolved]
  - Syncope [Recovered/Resolved]
